FAERS Safety Report 19948872 (Version 1)
Quarter: 2021Q4

REPORT INFORMATION
  Report Type: Report from Study
  Country: AT (occurrence: AT)
  Receive Date: 20211012
  Receipt Date: 20211012
  Transmission Date: 20220304
  Serious: Yes (Hospitalization, Other)
  Sender: FDA-Public Use
  Company Number: AT-ROCHE-2520357

PATIENT
  Age: 54 Year
  Sex: Female
  Weight: 75 kg

DRUGS (52)
  1. CYCLOPHOSPHAMIDE [Suspect]
     Active Substance: CYCLOPHOSPHAMIDE
     Indication: HER2 positive breast cancer
     Dosage: 50 MG, QD, MOST RECENT DOSE ON 09/MAR/2020
     Route: 048
     Dates: start: 20200219, end: 20200309
  2. CAPECITABINE [Suspect]
     Active Substance: CAPECITABINE
     Indication: HER2 positive breast cancer
     Dosage: OTHER
     Route: 048
     Dates: start: 20191219
  3. CAPECITABINE [Suspect]
     Active Substance: CAPECITABINE
     Dosage: 500 MG, FREQUENCY: OTHER MOST RECENT DOSE PRIOR TO THE EVENT: 19/DEC/2019
     Dates: start: 20191126, end: 20191218
  4. TRASTUZUMAB [Suspect]
     Active Substance: TRASTUZUMAB
     Indication: HER2 positive breast cancer
     Route: 042
     Dates: start: 20180328, end: 20180328
  5. TRASTUZUMAB [Suspect]
     Active Substance: TRASTUZUMAB
     Dosage: MOST RECENT DOSE WAS RECEIVED ON 09/JAN/2019.
     Dates: start: 20181123
  6. TRASTUZUMAB [Suspect]
     Active Substance: TRASTUZUMAB
     Dates: start: 20181214, end: 20190109
  7. TRASTUZUMAB [Suspect]
     Active Substance: TRASTUZUMAB
     Dates: start: 20191011, end: 20191025
  8. TRASTUZUMAB [Suspect]
     Active Substance: TRASTUZUMAB
     Dates: start: 20180423, end: 20180423
  9. TRASTUZUMAB [Suspect]
     Active Substance: TRASTUZUMAB
     Dates: start: 20181102, end: 20181123
  10. TRASTUZUMAB [Suspect]
     Active Substance: TRASTUZUMAB
     Dates: start: 20181214, end: 20190109
  11. TRASTUZUMAB [Suspect]
     Active Substance: TRASTUZUMAB
     Dosage: MOST RECENT DOSE PRIOR TO THE EVENT: 11/OCT/2019.
     Dates: start: 20180328, end: 20180328
  12. TRASTUZUMAB [Suspect]
     Active Substance: TRASTUZUMAB
     Dates: start: 20190119, end: 20200129
  13. TRASTUZUMAB [Suspect]
     Active Substance: TRASTUZUMAB
     Dates: start: 20180626, end: 20181010
  14. TRASTUZUMAB [Suspect]
     Active Substance: TRASTUZUMAB
     Dates: start: 20180515, end: 20180515
  15. ADO-TRASTUZUMAB EMTANSINE [Suspect]
     Active Substance: ADO-TRASTUZUMAB EMTANSINE
     Indication: HER2 positive breast cancer
     Dosage: DOSE ON 17/MAY/2019 ?MOST RECENT DOSE PRIOR TO THE EVENT: 28/JUN/2019
     Route: 042
     Dates: start: 20190131, end: 20190517
  16. ADO-TRASTUZUMAB EMTANSINE [Suspect]
     Active Substance: ADO-TRASTUZUMAB EMTANSINE
     Dosage: DOSE ON 17/MAY/2019?MOST RECENT DOSE PRIOR TO THE EVENT: 28/JUN/2019
     Dates: start: 20190131
  17. ADO-TRASTUZUMAB EMTANSINE [Suspect]
     Active Substance: ADO-TRASTUZUMAB EMTANSINE
     Dosage: DOSE ON 17/MAY/2019?MOST RECENT DOSE PRIOR TO THE EVENT: 11/MAR/2020
     Dates: start: 20210228
  18. TAXOL [Suspect]
     Active Substance: PACLITAXEL
     Indication: HER2 positive breast cancer
     Dosage: WEEKLY?RECENT DOSE ON 09/APR/2018
     Route: 042
     Dates: start: 20180328, end: 20180409
  19. METHOTREXATE [Suspect]
     Active Substance: METHOTREXATE
     Indication: HER2 positive breast cancer
     Dosage: 2.5 MG, 0.5 WEEK, MOST RECENT DOSE ON 09/MAR/2020
     Route: 048
     Dates: start: 20200219, end: 20200309
  20. PERTUZUMAB [Suspect]
     Active Substance: PERTUZUMAB
     Indication: HER2 positive breast cancer
     Route: 042
     Dates: start: 20181214, end: 20190109
  21. PERTUZUMAB [Suspect]
     Active Substance: PERTUZUMAB
     Dosage: 420 MG, 3 WEEKS
     Dates: start: 20180423, end: 20180423
  22. PERTUZUMAB [Suspect]
     Active Substance: PERTUZUMAB
     Dosage: MOST RECENT DOSE PRIOR TO THE EVENT: 14/DEC/2018
     Dates: start: 20180328, end: 20180328
  23. ABRAXANE [Suspect]
     Active Substance: PACLITAXEL
     Indication: HER2 positive breast cancer
     Dosage: DOSE ON 08/MAY/2018?MOST RECENT DOSE PRIOR TO THE EVENT: 07/DEC/2018
     Dates: start: 20180416
  24. NERATINIB [Suspect]
     Active Substance: NERATINIB
     Indication: HER2 positive breast cancer
     Route: 048
     Dates: start: 20200108, end: 20200118
  25. NERATINIB [Suspect]
     Active Substance: NERATINIB
     Dates: start: 20200119, end: 20200129
  26. NAVELBINE [Suspect]
     Active Substance: VINORELBINE TARTRATE
     Indication: HER2 positive breast cancer
     Dosage: RECENT DOSE: 28/OCT/2019
     Route: 048
     Dates: start: 20191011, end: 20191025
  27. PACLITAXEL [Suspect]
     Active Substance: PACLITAXEL
     Indication: HER2 positive breast cancer
     Route: 042
     Dates: start: 20190102, end: 20190515
  28. PACLITAXEL [Suspect]
     Active Substance: PACLITAXEL
     Dates: start: 20190116, end: 20190116
  29. PACLITAXEL [Suspect]
     Active Substance: PACLITAXEL
     Dates: start: 20180328, end: 20180409
  30. PACLITAXEL [Suspect]
     Active Substance: PACLITAXEL
     Dates: start: 20180522, end: 20180529
  31. PACLITAXEL [Suspect]
     Active Substance: PACLITAXEL
     Dates: start: 20180626, end: 20180718
  32. PACLITAXEL [Suspect]
     Active Substance: PACLITAXEL
     Dates: start: 20181102, end: 20181123
  33. PACLITAXEL [Suspect]
     Active Substance: PACLITAXEL
     Dates: start: 20180612, end: 20180612
  34. PACLITAXEL [Suspect]
     Active Substance: PACLITAXEL
     Dates: start: 20190109, end: 20190109
  35. PACLITAXEL [Suspect]
     Active Substance: PACLITAXEL
     Dates: start: 20180605, end: 20190515
  36. PACLITAXEL [Suspect]
     Active Substance: PACLITAXEL
     Dates: start: 20181207, end: 20181221
  37. PACLITAXEL [Suspect]
     Active Substance: PACLITAXEL
     Dates: start: 20180416, end: 20180508
  38. PACLITAXEL [Suspect]
     Active Substance: PACLITAXEL
     Dates: start: 20180515, end: 20180515
  39. XGEVA [Concomitant]
     Active Substance: DENOSUMAB
     Indication: Product used for unknown indication
     Route: 065
     Dates: start: 20191219, end: 20200410
  40. cal d vita [Concomitant]
     Indication: Product used for unknown indication
     Dosage: ONGOING = CHECKED
     Route: 065
     Dates: start: 20190425
  41. HYDROMORPHONE HYDROCHLORIDE [Concomitant]
     Active Substance: HYDROMORPHONE HYDROCHLORIDE
     Indication: Product used for unknown indication
     Dosage: UNK
     Route: 065
     Dates: start: 20200311, end: 20200410
  42. HYDROMORPHONE HYDROCHLORIDE [Concomitant]
     Active Substance: HYDROMORPHONE HYDROCHLORIDE
     Dosage: UNK
     Dates: start: 20200228, end: 20200410
  43. HYDROMORPHONE HYDROCHLORIDE [Concomitant]
     Active Substance: HYDROMORPHONE HYDROCHLORIDE
     Dosage: UNK
     Dates: start: 20200228, end: 20200311
  44. DEXPANTHENOL\HYALURONATE SODIUM [Concomitant]
     Active Substance: DEXPANTHENOL\HYALURONATE SODIUM
     Indication: Conjunctivitis
     Dosage: ADDITIONAL INFO: OFF LABEL USE
     Route: 065
     Dates: start: 20180619
  45. HYDROMORPHONE HYDROCHLORIDE [Concomitant]
     Active Substance: HYDROMORPHONE HYDROCHLORIDE
     Indication: Product used for unknown indication
     Route: 065
  46. DEXAMETHASONE [Concomitant]
     Active Substance: DEXAMETHASONE
     Indication: Product used for unknown indication
     Route: 065
     Dates: start: 20190628, end: 20190830
  47. Novalgin [Concomitant]
     Indication: Product used for unknown indication
     Dosage: UNK
     Route: 065
     Dates: start: 20200224, end: 20200410
  48. OCTENIDINE\PHENOXYETHANOL [Concomitant]
     Active Substance: OCTENIDINE\PHENOXYETHANOL
     Indication: Onycholysis
     Route: 065
     Dates: start: 20180725
  49. DEXPANTHENOL [Concomitant]
     Active Substance: DEXPANTHENOL
     Indication: Onycholysis
     Route: 065
     Dates: start: 20180725
  50. PANTOPRAZOLE SODIUM [Concomitant]
     Active Substance: PANTOPRAZOLE SODIUM
     Indication: Product used for unknown indication
     Dosage: ONGOING = CHECKED
     Route: 065
     Dates: start: 20191011, end: 20200410
  51. Enterobene [Concomitant]
     Indication: Product used for unknown indication
     Dates: start: 20200108, end: 20200113
  52. KYTRIL [Concomitant]
     Active Substance: GRANISETRON HYDROCHLORIDE
     Indication: Product used for unknown indication
     Dosage: ONGOING = NOT CHECKED
     Route: 065
     Dates: start: 20190628, end: 20190830

REACTIONS (11)
  - Breast cancer metastatic [Recovering/Resolving]
  - Dyspnoea [Recovered/Resolved]
  - Febrile neutropenia [Recovered/Resolved]
  - Tumour pain [Recovered/Resolved]
  - Intentional product use issue [Unknown]
  - Overdose [Unknown]
  - Off label use [Unknown]
  - C-reactive protein increased [Recovered/Resolved]
  - Stomatitis [Recovered/Resolved]
  - Diarrhoea [Recovered/Resolved]
  - Pain of skin [Recovered/Resolved]

NARRATIVE: CASE EVENT DATE: 20190920
